FAERS Safety Report 25001704 (Version 3)
Quarter: 2025Q2

REPORT INFORMATION
  Report Type: Spontaneous
  Country: LV (occurrence: LV)
  Receive Date: 20250223
  Receipt Date: 20250505
  Transmission Date: 20250716
  Serious: Yes (Other)
  Sender: NOVARTIS
  Company Number: LV-002147023-NVSC2025LV027394

PATIENT
  Age: 35 Year
  Sex: Female
  Weight: 50 kg

DRUGS (4)
  1. KESIMPTA [Suspect]
     Active Substance: OFATUMUMAB
     Indication: Multiple sclerosis
     Dosage: 20 MG, QMO
     Route: 058
     Dates: start: 20230217, end: 20240717
  2. ACETAMINOPHEN [Concomitant]
     Active Substance: ACETAMINOPHEN
     Indication: Pain
     Dosage: 500 MG, QD
     Route: 048
     Dates: start: 20240821, end: 20240821
  3. AMOXICILLIN\CLAVULANATE POTASSIUM [Concomitant]
     Active Substance: AMOXICILLIN\CLAVULANATE POTASSIUM
     Indication: Urinary tract infection
     Dosage: 125 MG, BID
     Route: 048
     Dates: start: 20240826, end: 20240901
  4. Furadonin [Concomitant]
     Indication: Urinary tract infection
     Dosage: 100 MG, BID
     Route: 048
     Dates: start: 20240608, end: 20240617

REACTIONS (2)
  - Abortion spontaneous [Unknown]
  - Maternal exposure timing unspecified [Unknown]

NARRATIVE: CASE EVENT DATE: 20240923
